FAERS Safety Report 5386806-3 (Version None)
Quarter: 2007Q3

REPORT INFORMATION
  Report Type: 
  Country: None (occurrence: None)
  Receive Date: 20070713
  Receipt Date: 20070702
  Transmission Date: 20080115
  Serious: Yes (Hospitalization, Other)
  Sender: FDA-Public Use
  Company Number: US-PFIZER INC-2006124710

PATIENT
  Sex: Female

DRUGS (4)
  1. CELEBREX [Suspect]
     Indication: RHEUMATOID ARTHRITIS
     Dates: start: 20010618, end: 20010805
  2. VIOXX [Suspect]
     Indication: RHEUMATOID ARTHRITIS
     Dosage: DAILY DOSE:75MG-TEXT:25MG-50 MG
     Dates: start: 20011106, end: 20021101
  3. PROPOXYPHENE HYDROCHLORIDE [Concomitant]
     Dates: start: 19990408, end: 20050123
  4. ASPIRIN [Concomitant]
     Dates: start: 20020901

REACTIONS (2)
  - CARDIOVASCULAR DISORDER [None]
  - MYOCARDIAL INFARCTION [None]
